FAERS Safety Report 10049385 (Version 3)
Quarter: 2014Q2

REPORT INFORMATION
  Report Type: Spontaneous
  Country: IT (occurrence: IT)
  Receive Date: 20140401
  Receipt Date: 20140522
  Transmission Date: 20141212
  Serious: Yes (Other)
  Sender: FDA-Public Use
  Company Number: IT-BRISTOL-MYERS SQUIBB COMPANY-20559191

PATIENT
  Age: 82 Year
  Sex: Male

DRUGS (3)
  1. COUMADIN TABS 5 MG [Suspect]
     Dosage: INTERRUPTED ON 22-JAN-2014
     Dates: start: 20130601
  2. TRENTAL [Interacting]
     Dosage: TABS?INTERRUPTED ON 22-JAN-2014
     Dates: start: 20130601
  3. ACETYLSALICYLIC ACID [Concomitant]

REACTIONS (2)
  - International normalised ratio increased [Recovering/Resolving]
  - Drug interaction [Unknown]
